FAERS Safety Report 7650285-3 (Version None)
Quarter: 2011Q3

REPORT INFORMATION
  Report Type: 
  Country: None (occurrence: None)
  Receive Date: 20110802
  Receipt Date: 20110729
  Transmission Date: 20111222
  Serious: Yes (Hospitalization)
  Sender: FDA-Public Use
  Company Number: BR-ABBOTT-11P-020-0842795-00

PATIENT
  Sex: Female
  Weight: 69 kg

DRUGS (1)
  1. HUMIRA [Suspect]
     Indication: RHEUMATOID ARTHRITIS
     Route: 058
     Dates: end: 20110528

REACTIONS (4)
  - BLOOD MAGNESIUM ABNORMAL [None]
  - BLOOD GLUCOSE ABNORMAL [None]
  - DIABETES MELLITUS [None]
  - BLOOD PHOSPHORUS ABNORMAL [None]
